FAERS Safety Report 7788765-2 (Version None)
Quarter: 2011Q3

REPORT INFORMATION
  Report Type: 
  Country: None (occurrence: None)
  Receive Date: 20110930
  Receipt Date: 20110922
  Transmission Date: 20111222
  Serious: Yes (Other)
  Sender: FDA-Public Use
  Company Number: US-PFIZER INC-2010090613

PATIENT
  Sex: Female
  Weight: 56.2 kg

DRUGS (2)
  1. PREGABALIN [Suspect]
     Indication: EPILEPSY
     Dosage: 150 MG, 2X/DAY
     Route: 048
     Dates: start: 20100426, end: 20100620
  2. PREGABALIN [Suspect]
     Dosage: 300 MG, 2X/DAY
     Route: 048
     Dates: start: 20100621, end: 20100715

REACTIONS (10)
  - DIARRHOEA [None]
  - HEAD INJURY [None]
  - DIZZINESS [None]
  - JOINT DISLOCATION [None]
  - GRAND MAL CONVULSION [None]
  - HAEMORRHAGE [None]
  - NECK PAIN [None]
  - DYSSTASIA [None]
  - SCRATCH [None]
  - NAUSEA [None]
